FAERS Safety Report 25915648 (Version 1)
Quarter: 2025Q4

REPORT INFORMATION
  Report Type: Spontaneous
  Country: US (occurrence: US)
  Receive Date: 20251013
  Receipt Date: 20251013
  Transmission Date: 20260117
  Serious: Yes (Other)
  Sender: AMGEN
  Company Number: US-AMGEN-USASP2025199299

PATIENT
  Age: 15 Year
  Sex: Male

DRUGS (1)
  1. PREDNISONE [Suspect]
     Active Substance: PREDNISONE
     Indication: Tractional retinal detachment
     Dosage: 40 MILLIGRAM, QD
     Route: 048

REACTIONS (5)
  - Tractional retinal detachment [Unknown]
  - Vitreoretinal traction syndrome [Unknown]
  - Uveitis [Unknown]
  - Drug effective for unapproved indication [Unknown]
  - Off label use [Unknown]
